FAERS Safety Report 8607295-9 (Version None)
Quarter: 2012Q3

REPORT INFORMATION
  Report Type: 
  Country: None (occurrence: None)
  Receive Date: 20120807
  Receipt Date: 20120728
  Transmission Date: 20120928
  Serious: Yes (Death, Congenital Anomaly, Other)
  Sender: FDA-Public Use
  Company Number: AUR-APL-2012-03216

PATIENT
  Sex: Male

DRUGS (2)
  1. LAMOTRIGINE [Suspect]
     Indication: EPILEPSY
     Dosage: 300 MG (300 MG,1 IN 1 D),TRANSPLACENTAL
     Route: 064
  2. FOLIC ACID [Concomitant]

REACTIONS (4)
  - MATERNAL DRUGS AFFECTING FOETUS [None]
  - RENAL APLASIA [None]
  - ANAL ATRESIA [None]
  - POLYDACTYLY [None]
